FAERS Safety Report 18712544 (Version 4)
Quarter: 2021Q2

REPORT INFORMATION
  Report Type: Report from Study
  Country: US (occurrence: US)
  Receive Date: 20210107
  Receipt Date: 20210512
  Transmission Date: 20210717
  Serious: Yes (Hospitalization, Other)
  Sender: FDA-Public Use
  Company Number: US-B.I. PHARMACEUTICALS,INC./RIDGEFIELD-2020-BI-029139

PATIENT
  Age: 69 Year
  Sex: Female

DRUGS (1)
  1. OFEV [Suspect]
     Active Substance: NINTEDANIB
     Indication: IDIOPATHIC PULMONARY FIBROSIS
     Route: 048
     Dates: start: 20200409

REACTIONS (13)
  - Cardiac failure congestive [Unknown]
  - Pneumonia [Unknown]
  - Constipation [Unknown]
  - Gastric haemorrhage [Unknown]
  - Abdominal discomfort [Unknown]
  - Small intestinal obstruction [Unknown]
  - Cardiac disorder [Unknown]
  - Respiration abnormal [Unknown]
  - Infection [Unknown]
  - Volvulus of small bowel [Unknown]
  - Coronary arterial stent insertion [Unknown]
  - Abdominal pain upper [Unknown]
  - White blood cell count increased [Unknown]

NARRATIVE: CASE EVENT DATE: 202012
